FAERS Safety Report 14935990 (Version 2)
Quarter: 2018Q2

REPORT INFORMATION
  Report Type: Spontaneous
  Country: CO (occurrence: CO)
  Receive Date: 20180524
  Receipt Date: 20180607
  Transmission Date: 20180711
  Serious: Yes (Other)
  Sender: FDA-Public Use
  Company Number: CO-IMPAX LABORATORIES, INC-2018-IPXL-01745

PATIENT
  Age: 37 Year
  Sex: Female

DRUGS (1)
  1. CABERGOLINE. [Suspect]
     Active Substance: CABERGOLINE
     Indication: BRAIN NEOPLASM
     Dosage: UNK
     Route: 065

REACTIONS (4)
  - Diplopia [Recovered/Resolved]
  - Pituitary tumour [Recovered/Resolved]
  - Diabetes insipidus [Unknown]
  - Visual acuity reduced [Recovered/Resolved]
